FAERS Safety Report 7054509-5 (Version None)
Quarter: 2010Q4

REPORT INFORMATION
  Report Type: 
  Country: None (occurrence: None)
  Receive Date: 20101015
  Receipt Date: 20081029
  Transmission Date: 20110411
  Serious: Yes (Hospitalization, Other)
  Sender: FDA-Public Use
  Company Number: 2008-1660

PATIENT
  Age: 9 Year
  Sex: Male
  Weight: 23.6 kg

DRUGS (5)
  1. INCRELEX [Suspect]
     Indication: INSULIN-LIKE GROWTH FACTOR DECREASED
     Dosage: (52 UNITS (26 UNITS, 2 IN 1 D), SUBCUTANEOUS), (52 UNITS  (26 UNITS, 2 IN 1 D), SUBCUTANEOUS)
     Route: 058
     Dates: start: 20070622, end: 20080425
  2. INCRELEX [Suspect]
     Indication: INSULIN-LIKE GROWTH FACTOR DECREASED
     Dosage: (52 UNITS (26 UNITS, 2 IN 1 D), SUBCUTANEOUS), (52 UNITS  (26 UNITS, 2 IN 1 D), SUBCUTANEOUS)
     Route: 058
     Dates: start: 20080101, end: 20080731
  3. STRATIERA (METHYLPHENIDATE HYDROCHLORIDE) [Suspect]
     Indication: ATTENTION DEFICIT/HYPERACTIVITY DISORDER
     Dosage: 18 MG IN THE AM + 25 MG IN THE PM (2 IN 1 D), UNKNOWN
     Dates: start: 20080530
  4. FLINSTONES MULTIPLE VITAMINS (VITAMINS NOS) [Concomitant]
  5. CONCERTA [Concomitant]

REACTIONS (5)
  - ABNORMAL BEHAVIOUR [None]
  - DRUG INTERACTION [None]
  - EYE DISORDER [None]
  - HEADACHE [None]
  - INTRACRANIAL PRESSURE INCREASED [None]
